FAERS Safety Report 24181960 (Version 1)
Quarter: 2024Q3

REPORT INFORMATION
  Report Type: Spontaneous
  Country: US (occurrence: US)
  Receive Date: 20240807
  Receipt Date: 20240807
  Transmission Date: 20241016
  Serious: Yes (Hospitalization, Other)
  Sender: OSMOTICA PHARMA
  Company Number: US-OSMOTICA PHARMACEUTICALS-2024ALO00364

PATIENT
  Age: 3 Year
  Sex: Female
  Weight: 13.5 kg

DRUGS (8)
  1. HYDROMORPHONE HYDROCHLORIDE [Suspect]
     Active Substance: HYDROMORPHONE HYDROCHLORIDE
     Indication: Sedative therapy
     Dosage: UNK
     Route: 048
  2. HYDROMORPHONE HYDROCHLORIDE [Suspect]
     Active Substance: HYDROMORPHONE HYDROCHLORIDE
     Indication: Analgesic therapy
  3. DIHYDROCODEINE [Suspect]
     Active Substance: DIHYDROCODEINE
     Dosage: UNK
     Route: 048
  4. HYDROCODONE [Suspect]
     Active Substance: HYDROCODONE
     Dosage: UNK
     Route: 048
  5. FENTANYL [Suspect]
     Active Substance: FENTANYL\FENTANYL CITRATE
     Dosage: 100 ?G FENTANYL WAS ADMINISTERED DURING THE AIRLIFT
  6. FENTANYL [Suspect]
     Active Substance: FENTANYL\FENTANYL CITRATE
     Dosage: BOLUS OF 7 ?G (DAY 0; 1:07 PM)
  7. FENTANYL [Suspect]
     Active Substance: FENTANYL\FENTANYL CITRATE
     Dosage: BOLUS OF 15 ?G (DAY 1; 11:10 AM)
  8. FENTANYL [Suspect]
     Active Substance: FENTANYL\FENTANYL CITRATE
     Dosage: CONTINOUS INFUSION AS NEEDED AT 2 ?G/KG/H (STARTED ON DAY 1 AT 12:30AM)

REACTIONS (9)
  - Brain oedema [Recovered/Resolved]
  - Brain herniation [Recovered/Resolved]
  - Accidental exposure to product by child [Recovered/Resolved]
  - Toxicity to various agents [Recovered/Resolved]
  - Toxic leukoencephalopathy [Recovered/Resolved]
  - Gait disturbance [Not Recovered/Not Resolved]
  - Speech disorder [Not Recovered/Not Resolved]
  - Hypertension [Recovered/Resolved]
  - Bradycardia [Recovered/Resolved]
